FAERS Safety Report 8387294-5 (Version None)
Quarter: 2012Q2

REPORT INFORMATION
  Report Type: 
  Country: None (occurrence: None)
  Receive Date: 20120525
  Receipt Date: 20120515
  Transmission Date: 20120825
  Serious: Yes (Other)
  Sender: FDA-Public Use
  Company Number: BR-ROCHE-1070597

PATIENT
  Sex: Female

DRUGS (2)
  1. XOLAIR [Suspect]
     Dates: start: 20120514
  2. XOLAIR [Suspect]
     Indication: PRODUCT USED FOR UNKNOWN INDICATION

REACTIONS (2)
  - ASTHMA [None]
  - BLOOD IMMUNOGLOBULIN E INCREASED [None]
